FAERS Safety Report 8494332-8 (Version None)
Quarter: 2012Q2

REPORT INFORMATION
  Report Type: 
  Country: None (occurrence: None)
  Receive Date: 20120405
  Receipt Date: 20090127
  Transmission Date: 20120825
  Serious: Yes (Other)
  Sender: FDA-Public Use
  Company Number: PHEH2009US00671

PATIENT
  Age: 77 Year
  Sex: Female

DRUGS (1)
  1. RECLAST [Suspect]
     Dosage: 5 MG, UNK, INFUSION

REACTIONS (5)
  - OSTEONECROSIS [None]
  - ERYTHEMA [None]
  - JOINT SWELLING [None]
  - BONE DISORDER [None]
  - PAIN IN JAW [None]
